FAERS Safety Report 10101868 (Version 1)
Quarter: 2014Q2

REPORT INFORMATION
  Report Type: Report from Study
  Country: FR (occurrence: FR)
  Receive Date: 20140424
  Receipt Date: 20140424
  Transmission Date: 20141212
  Serious: Yes (Other)
  Sender: FDA-Public Use
  Company Number: FR-BAXTER-2014BAX020830

PATIENT
  Sex: 0

DRUGS (4)
  1. ENDOXAN 1000 MG, POUDRE POUR SOLUTION INJECTABLE [Suspect]
     Indication: PRODUCT USED FOR UNKNOWN INDICATION
     Dosage: X 1
     Route: 065
  2. FLUDARABINE [Suspect]
     Indication: PRODUCT USED FOR UNKNOWN INDICATION
     Dosage: X 5 DAYS
     Route: 065
  3. MYCOPHENOLATE MOFETIL [Suspect]
     Indication: GRAFT VERSUS HOST DISEASE
     Dosage: D3-D8
     Route: 065
  4. CYCLOSPORINE A [Suspect]
     Indication: GRAFT VERSUS HOST DISEASE
     Dosage: D3
     Route: 065

REACTIONS (1)
  - Leukaemia recurrent [Unknown]
